FAERS Safety Report 4730428-1 (Version None)
Quarter: 2005Q3

REPORT INFORMATION
  Report Type: 
  Country: None (occurrence: None)
  Receive Date: 20050801
  Receipt Date: 20050520
  Transmission Date: 20060218
  Serious: Yes (Hospitalization)
  Sender: FDA-Public Use
  Company Number: CA-AMGEN-US132185

PATIENT
  Sex: Female
  Weight: 77 kg

DRUGS (1)
  1. ARANESP [Suspect]
     Indication: DIALYSIS
     Route: 058
     Dates: start: 20040419

REACTIONS (8)
  - BLOOD FOLATE INCREASED [None]
  - BLOOD IRON DECREASED [None]
  - BLOOD PARATHYROID HORMONE DECREASED [None]
  - HAEMOGLOBIN ABNORMAL [None]
  - MYOCARDIAL INFARCTION [None]
  - SERUM FERRITIN INCREASED [None]
  - THERAPEUTIC RESPONSE DECREASED [None]
  - VITAMIN B12 DECREASED [None]
